FAERS Safety Report 8291854-X (Version None)
Quarter: 2012Q2

REPORT INFORMATION
  Report Type: 
  Country: None (occurrence: None)
  Receive Date: 20120417
  Receipt Date: 20120409
  Transmission Date: 20120825
  Serious: No
  Sender: FDA-Public Use
  Company Number: US-ELI_LILLY_AND_COMPANY-US201202000813

PATIENT
  Sex: Female

DRUGS (2)
  1. HIDROCLOROTIAZIDA [Concomitant]
  2. FORTEO [Suspect]
     Indication: OSTEOPOROSIS
     Dosage: 20 UG, QD
     Dates: start: 20111001, end: 20120101

REACTIONS (2)
  - SPINAL COMPRESSION FRACTURE [None]
  - BLOOD CALCIUM INCREASED [None]
